FAERS Safety Report 7776377-6 (Version None)
Quarter: 2011Q3

REPORT INFORMATION
  Report Type: 
  Country: None (occurrence: None)
  Receive Date: 20110926
  Receipt Date: 20110914
  Transmission Date: 20111222
  Serious: Yes (Hospitalization)
  Sender: FDA-Public Use
  Company Number: JP-JNJFOC-20091207478

PATIENT
  Sex: Male
  Weight: 60 kg

DRUGS (15)
  1. GOLIMUMAB [Suspect]
     Route: 058
     Dates: start: 20090831
  2. ALENDRONATE SODIUM [Concomitant]
     Route: 048
     Dates: start: 20101204
  3. GOLIMUMAB [Suspect]
     Indication: RHEUMATOID ARTHRITIS
     Route: 058
     Dates: start: 20091222
  4. GOLIMUMAB [Suspect]
     Route: 058
     Dates: start: 20091124
  5. DICLOFENAC SODIUM [Concomitant]
     Indication: RHEUMATOID ARTHRITIS
     Route: 048
     Dates: start: 20090219
  6. ALENDRONATE SODIUM [Concomitant]
     Indication: OSTEOPOROSIS PROPHYLAXIS
     Route: 048
     Dates: end: 20091124
  7. RABEPRAZOLE SODIUM [Concomitant]
     Indication: PROPHYLAXIS AGAINST GASTROINTESTINAL ULCER
     Route: 048
  8. GOLIMUMAB [Suspect]
     Route: 058
     Dates: start: 20090417
  9. MOHRUS TAPE [Concomitant]
     Indication: RHEUMATOID ARTHRITIS
     Route: 062
  10. PREDNISOLONE [Concomitant]
     Route: 048
     Dates: start: 20090928
  11. PURSENNID [Concomitant]
     Indication: CONSTIPATION
     Route: 048
     Dates: start: 20090612
  12. LAXOBERON [Concomitant]
     Indication: CONSTIPATION
     Route: 048
     Dates: start: 20090724
  13. MOHRUS TAPE [Concomitant]
     Route: 062
  14. GOLIMUMAB [Suspect]
     Route: 058
     Dates: start: 20091027
  15. PREDNISOLONE [Concomitant]
     Indication: RHEUMATOID ARTHRITIS
     Route: 048
     Dates: start: 20090831, end: 20090928

REACTIONS (1)
  - PULPITIS DENTAL [None]
